FAERS Safety Report 8887135 (Version 1)
Quarter: 2012Q4

REPORT INFORMATION
  Report Type: 
  Country: US (occurrence: US)
  Receive Date: 20121105
  Receipt Date: 20121105
  Transmission Date: 20130627
  Serious: Yes (Other)
  Sender: FDA-Public Use
  Company Number: US-B.I. PHARMACEUTICALS,INC./RIDGEFIELD-2012-BP-27118BP

PATIENT
  Sex: Male
  Weight: 68 kg

DRUGS (9)
  1. SPIRIVA [Suspect]
     Indication: INTERSTITIAL LUNG DISEASE
     Dosage: 18 mcg
     Route: 055
     Dates: start: 201104
  2. NEXIUM [Concomitant]
     Indication: GASTROOESOPHAGEAL REFLUX DISEASE
     Dosage: 80 mg
     Route: 048
     Dates: start: 2002
  3. MEDICAL MARIJUANA [Concomitant]
     Indication: NERVOUS SYSTEM DISORDER
     Route: 055
     Dates: start: 201012
  4. MEDICAL MARIJUANA [Concomitant]
     Indication: BACK PAIN
  5. MULTIVITMAIN [Concomitant]
     Route: 048
     Dates: start: 1991
  6. ASPIRIN [Concomitant]
     Indication: ROUTINE HEALTH MAINTENANCE
     Dosage: 320 mg
     Route: 048
     Dates: start: 201205
  7. IRON [Concomitant]
     Indication: IRON DEFICIENCY
     Route: 048
     Dates: start: 2010
  8. VITAMIN D [Concomitant]
     Indication: ALOPECIA
     Route: 048
     Dates: start: 1997
  9. ZYRTEC [Concomitant]
     Indication: SEASONAL ALLERGY
     Route: 048
     Dates: start: 2002

REACTIONS (3)
  - Oesophageal carcinoma [Not Recovered/Not Resolved]
  - Erosive oesophagitis [Not Recovered/Not Resolved]
  - Back pain [Not Recovered/Not Resolved]
